FAERS Safety Report 23926769 (Version 2)
Quarter: 2024Q2

REPORT INFORMATION
  Report Type: Spontaneous
  Country: MX (occurrence: MX)
  Receive Date: 20240531
  Receipt Date: 20240625
  Transmission Date: 20240716
  Serious: Yes (Hospitalization)
  Sender: FDA-Public Use
  Company Number: MX-009507513-2404MEX005995

PATIENT
  Age: 49 Year
  Sex: Female
  Weight: 63.4 kg

DRUGS (12)
  1. BRIDION [Suspect]
     Active Substance: SUGAMMADEX
     Indication: Neuromuscular blockade reversal
     Dosage: 200 MILLIGRAM; ONCE
     Route: 042
     Dates: start: 20240406, end: 20240406
  2. BRIDION [Suspect]
     Active Substance: SUGAMMADEX
     Dosage: 200 MILLIGRAM; ONCE
     Route: 042
     Dates: start: 20240406, end: 20240406
  3. ROCURONIUM BROMIDE [Concomitant]
     Active Substance: ROCURONIUM BROMIDE
     Indication: Muscle relaxant therapy
     Dosage: 80 MG, IV (TOTAL DAILY DOSE REPORTED AS 80 MG), ONCE
     Route: 042
     Dates: start: 20240406, end: 20240406
  4. SUFENTANIL [Concomitant]
     Active Substance: SUFENTANIL
     Indication: Anaesthesia
     Dosage: TOTAL DAILY DOSE 100 MCG, IV, ONCE
     Route: 042
     Dates: start: 20240406, end: 20240406
  5. PROPOFOL [Concomitant]
     Active Substance: PROPOFOL
     Indication: Anaesthesia
     Dosage: TOTAL DAILY DOSE (1083 MG), IV, ONCE
     Route: 042
     Dates: start: 20240406, end: 20240406
  6. CEFTRIAXONE [Concomitant]
     Active Substance: CEFTRIAXONE\CEFTRIAXONE SODIUM
     Indication: Antibiotic therapy
     Dosage: TOTAL DAILY DOSE (1 G), ONCE
     Route: 042
     Dates: start: 20240406, end: 20240407
  7. CEFTRIAXONE [Concomitant]
     Active Substance: CEFTRIAXONE\CEFTRIAXONE SODIUM
     Dosage: TOTAL DAILY DOSE (1 G), ONCE
     Route: 042
     Dates: start: 20240406, end: 20240407
  8. TRANEXAMIC ACID [Concomitant]
     Active Substance: TRANEXAMIC ACID
     Indication: Anticoagulant therapy
     Dosage: TOTAL DAILY DOSE (1 G), IV, ONCE
     Route: 042
     Dates: start: 20240406, end: 20240406
  9. METRONIDAZOLE [Concomitant]
     Active Substance: METRONIDAZOLE
     Indication: Antibiotic therapy
     Dosage: TOTAL DAILY DOSE 500 MG, IV, ONCE
     Route: 042
     Dates: start: 20240406, end: 20240407
  10. ACETAMINOPHEN [Concomitant]
     Active Substance: ACETAMINOPHEN
     Indication: Analgesic therapy
     Dosage: TOTAL DAILY DOSE (3G), IV
     Route: 042
     Dates: start: 20240406, end: 20240409
  11. LOSARTAN [Concomitant]
     Active Substance: LOSARTAN
     Indication: Product used for unknown indication
  12. HYDROCHLOROTHIAZIDE [Concomitant]
     Active Substance: HYDROCHLOROTHIAZIDE
     Indication: Product used for unknown indication
     Dosage: 50MG/12MG, Q24H
     Route: 048

REACTIONS (5)
  - Drug ineffective [Recovered/Resolved]
  - Suspected counterfeit product [Unknown]
  - Physical product label issue [Unknown]
  - Product container issue [Unknown]
  - Poor quality product administered [Unknown]

NARRATIVE: CASE EVENT DATE: 20240406
